FAERS Safety Report 6504055-X (Version None)
Quarter: 2009Q4

REPORT INFORMATION
  Report Type: 
  Country: None (occurrence: None)
  Receive Date: 20091215
  Receipt Date: 20091203
  Transmission Date: 20100525
  Serious: Yes (Other)
  Sender: FDA-Public Use
  Company Number: 2009AP004920

PATIENT
  Age: 33 Year
  Sex: Female

DRUGS (1)
  1. CARBAMAZEPINE [Suspect]
     Indication: BORDERLINE PERSONALITY DISORDER
     Dosage: 600 MG; PO, 600 MG; TAB; PO
     Route: 048

REACTIONS (2)
  - PRURITUS [None]
  - SKIN HAEMORRHAGE [None]
